FAERS Safety Report 15658066 (Version 1)
Quarter: 2018Q4

REPORT INFORMATION
  Report Type: Spontaneous
  Country: IT (occurrence: IT)
  Receive Date: 20181126
  Receipt Date: 20181126
  Transmission Date: 20190205
  Serious: Yes (Hospitalization)
  Sender: FDA-Public Use
  Company Number: PHHY2018IT164162

PATIENT
  Age: 36 Year
  Sex: Female

DRUGS (2)
  1. TEGRETOL [Suspect]
     Active Substance: CARBAMAZEPINE
     Indication: PRODUCT USED FOR UNKNOWN INDICATION
     Dosage: 30 DF, UNK
     Route: 048
     Dates: start: 20181008
  2. TRITTICO [Suspect]
     Active Substance: TRAZODONE HYDROCHLORIDE
     Indication: PRODUCT USED FOR UNKNOWN INDICATION
     Dosage: 30 DF, UNK
     Route: 048
     Dates: start: 20181008

REACTIONS (2)
  - Drug abuse [Recovering/Resolving]
  - Alcohol abuse [Recovering/Resolving]

NARRATIVE: CASE EVENT DATE: 20181008
